FAERS Safety Report 6580028-6 (Version None)
Quarter: 2010Q1

REPORT INFORMATION
  Report Type: 
  Country: None (occurrence: None)
  Receive Date: 20100212
  Receipt Date: 20100205
  Transmission Date: 20100710
  Serious: Yes (Death)
  Sender: FDA-Public Use
  Company Number: CA-MERCK-1002CAN00010

PATIENT
  Age: 75 Year
  Sex: Male

DRUGS (1)
  1. FOSAMAX [Suspect]
     Route: 048

REACTIONS (4)
  - FOREIGN BODY [None]
  - HAEMORRHAGE [None]
  - LUNG DISORDER [None]
  - OESOPHAGEAL RUPTURE [None]
